FAERS Safety Report 20602771 (Version 1)
Quarter: 2022Q1

REPORT INFORMATION
  Report Type: Spontaneous
  Country: US (occurrence: US)
  Receive Date: 20220316
  Receipt Date: 20220316
  Transmission Date: 20220423
  Serious: Yes (Other)
  Sender: FDA-Public Use
  Company Number: US-PFIZER INC-202200386957

PATIENT
  Age: 70 Year

DRUGS (1)
  1. DESVENLAFAXINE SUCCINATE [Suspect]
     Active Substance: DESVENLAFAXINE SUCCINATE
     Indication: Depression
     Dosage: UNK

REACTIONS (6)
  - Hallucination, auditory [Unknown]
  - Hallucination, visual [Unknown]
  - Diabetes mellitus [Unknown]
  - Nightmare [Unknown]
  - Gait disturbance [Unknown]
  - Intentional product use issue [Unknown]
